FAERS Safety Report 8958805 (Version 2)
Quarter: 2014Q2

REPORT INFORMATION
  Report Type: Spontaneous
  Country: US (occurrence: US)
  Receive Date: 20121212
  Receipt Date: 20140429
  Transmission Date: 20141212
  Serious: Yes (Hospitalization, Other)
  Sender: FDA-Public Use
  Company Number: US-BAYER-2012-129886

PATIENT
  Age: 21 Year
  Sex: Female
  Weight: 63.04 kg

DRUGS (6)
  1. YASMIN [Suspect]
     Dosage: UNK
     Dates: start: 2001
  2. YASMIN [Suspect]
     Dosage: UNK
     Dates: start: 20070220, end: 2011
  3. OCELLA [Suspect]
     Dosage: UNK
     Dates: start: 2001, end: 2011
  4. YAZ [Suspect]
     Dosage: UNK
     Dates: start: 2001, end: 2011
  5. SINGULAIR [Concomitant]
  6. ALBUTEROL [Concomitant]

REACTIONS (2)
  - Cholecystectomy [None]
  - Cholelithiasis [None]
